FAERS Safety Report 9368292 (Version 1)
Quarter: 2013Q2

REPORT INFORMATION
  Report Type: Spontaneous
  Country: US (occurrence: US)
  Receive Date: 20130625
  Receipt Date: 20130625
  Transmission Date: 20140414
  Serious: No
  Sender: FDA-Public Use
  Company Number: US-ASTELLAS-2013US000380

PATIENT
  Sex: Female
  Weight: 104 kg

DRUGS (11)
  1. VESICARE [Suspect]
     Indication: HYPERTONIC BLADDER
     Dosage: 5 MG, UID/QD
     Route: 048
     Dates: start: 201211, end: 201212
  2. AVAPRO [Concomitant]
     Indication: HYPERTENSION
     Dosage: 300 MG, UID/QD
     Route: 048
     Dates: start: 1998
  3. LIPITOR [Concomitant]
     Indication: BLOOD CHOLESTEROL
     Dosage: 40 MG, UID/QD
     Route: 048
     Dates: start: 201211
  4. OMEPRAZOLE [Concomitant]
     Indication: GASTROOESOPHAGEAL REFLUX DISEASE
     Dosage: 20 MG, BID
     Route: 048
     Dates: start: 200411
  5. HYDROCODONE/APAP [Concomitant]
     Indication: ARTHRITIS
     Dosage: 650 MG, TID
     Route: 048
     Dates: start: 201201
  6. TIZANIDINE [Concomitant]
     Indication: MUSCLE RELAXANT THERAPY
     Dosage: 4 MG, UID/QD
     Route: 048
     Dates: start: 201101
  7. TERAZOSIN [Concomitant]
     Indication: INCONTINENCE
     Dosage: 5 MG, UID/QD
     Route: 048
     Dates: start: 201210
  8. GABAPENTIN [Concomitant]
     Indication: MYALGIA
     Dosage: 100 MG, TID
     Route: 048
     Dates: start: 201211
  9. ALENDRONATE [Concomitant]
     Indication: OSTEOPOROSIS
     Dosage: 70 MG, WEEKLY
     Route: 048
     Dates: start: 2008
  10. TRAMADOL [Concomitant]
     Indication: PAIN
     Dosage: 50 MG, UID/QD
     Route: 048
     Dates: start: 2008
  11. FUROSEMIDE [Concomitant]
     Indication: FLUID RETENTION
     Dosage: 10 MG, UID/QD
     Route: 048
     Dates: start: 1997

REACTIONS (1)
  - Constipation [Unknown]
